FAERS Safety Report 15243346 (Version 5)
Quarter: 2018Q3

REPORT INFORMATION
  Report Type: Report from Study
  Country: None (occurrence: SI)
  Receive Date: 20180806
  Receipt Date: 20180905
  Transmission Date: 20181010
  Serious: Yes (Hospitalization, Disabling)
  Sender: FDA-Public Use
  Company Number: SI-ABBVIE-18P-261-2440291-00

PATIENT
  Age: 76 Year
  Sex: Female

DRUGS (13)
  1. NEUPRO [Concomitant]
     Active Substance: ROTIGOTINE
     Indication: PARKINSON^S DISEASE
     Route: 062
     Dates: start: 2014, end: 20170510
  2. DUODOPA [Suspect]
     Active Substance: CARBIDOPA\LEVODOPA
     Dosage: MD: 6 ML, CD: 4.5 ML/H, ED: 2 ML, 0 X/D, 16 HR,
     Route: 050
     Dates: start: 20180130
  3. NILLAR [Concomitant]
     Indication: GASTRIC PH DECREASED
     Route: 048
     Dates: start: 201701
  4. KVENTIAX [Concomitant]
     Active Substance: QUETIAPINE FUMARATE
     Indication: SLEEP DISORDER
     Route: 048
     Dates: start: 20180725
  5. DUODOPA [Suspect]
     Active Substance: CARBIDOPA\LEVODOPA
     Dosage: MD: 6 ML, CD: 4.2 ML/H, ED: 3 ML, 2X/D, 16 HR,
     Route: 050
     Dates: start: 20170213, end: 20170712
  6. DUODOPA [Suspect]
     Active Substance: CARBIDOPA\LEVODOPA
     Dosage: MD: 6 ML, CD: 4.4 ML/H, ED: 3 ML, 2X/D, 16 HR,
     Route: 050
     Dates: start: 20170712, end: 20180130
  7. NAKOM MITE [Concomitant]
     Active Substance: CARBIDOPA\LEVODOPA
     Indication: PARKINSON^S DISEASE
     Route: 048
     Dates: start: 201702
  8. KVENTIAX [Concomitant]
     Active Substance: QUETIAPINE FUMARATE
     Indication: PAIN
  9. DUODOPA [Suspect]
     Active Substance: CARBIDOPA\LEVODOPA
     Indication: PARKINSON^S DISEASE
     Dosage: TITRATION: DAY 1: MD: 11 ML, CD:2.9 ML/H, ED: 2 ML, 2X/D, 14 HR,
     Route: 050
     Dates: start: 20170202, end: 20170213
  10. PAROXAT [Concomitant]
     Active Substance: PAROXETINE HYDROCHLORIDE
     Indication: ANXIETY
     Route: 048
     Dates: start: 2016, end: 201806
  11. KVENTIAX [Concomitant]
     Active Substance: QUETIAPINE FUMARATE
     Indication: HOSPITALISATION
  12. NEUPRO [Concomitant]
     Active Substance: ROTIGOTINE
     Route: 062
     Dates: start: 20170510
  13. PLIVIT D3 [Concomitant]
     Active Substance: CHOLECALCIFEROL
     Indication: OSTEOPOROSIS
     Route: 048
     Dates: start: 2015

REACTIONS (1)
  - Osteonecrosis [Recovered/Resolved]

NARRATIVE: CASE EVENT DATE: 20180725
